FAERS Safety Report 5542840-1 (Version None)
Quarter: 2007Q4

REPORT INFORMATION
  Report Type: 
  Country: None (occurrence: None)
  Receive Date: 20071123
  Receipt Date: 20070205
  Transmission Date: 20080405
  Serious: Yes (Other)
  Sender: FDA-Public Use
  Company Number: US-JNJFOC-20070201380

PATIENT

DRUGS (4)
  1. LEVAQUIN [Suspect]
     Indication: SINUSITIS
     Dosage: 500 MG,
  2. AMOXYCILLIN (AMOXICILLIN) UNSPECIFIED [Concomitant]
  3. AUGMENTIN (CLAVULIN) UNSPECIFIED [Concomitant]
  4. AMBIEN (ZOLPIDEM TARTRATE) UNSPECIFIED [Concomitant]

REACTIONS (9)
  - CHEST PAIN [None]
  - DEPRESSION [None]
  - EAR DISCOMFORT [None]
  - HEADACHE [None]
  - HEART RATE INCREASED [None]
  - HYPERHIDROSIS [None]
  - INSOMNIA [None]
  - MYALGIA [None]
  - TINNITUS [None]
